FAERS Safety Report 7372495-5 (Version None)
Quarter: 2011Q1

REPORT INFORMATION
  Report Type: 
  Country: None (occurrence: None)
  Receive Date: 20110324
  Receipt Date: 20110321
  Transmission Date: 20110831
  Serious: Yes (Hospitalization)
  Sender: FDA-Public Use
  Company Number: ES-ROCHE-766767

PATIENT
  Sex: Female

DRUGS (3)
  1. TRASTUZUMAB [Suspect]
     Dosage: MAINTANANCE DOSE
     Route: 042
  2. TRASTUZUMAB [Suspect]
     Dosage: LOADING DOSE.
     Route: 042
     Dates: start: 20101220
  3. DOCETAXEL [Suspect]
     Dosage: DOSE:115MG
     Route: 042
     Dates: start: 20101220

REACTIONS (1)
  - HYPERGLYCAEMIA [None]
